FAERS Safety Report 5475225-7 (Version None)
Quarter: 2007Q4

REPORT INFORMATION
  Report Type: 
  Country: None (occurrence: None)
  Receive Date: 20071002
  Receipt Date: 20070920
  Transmission Date: 20080405
  Serious: Yes (Death, Other)
  Sender: FDA-Public Use
  Company Number: US-PFIZER INC-2007079431

PATIENT
  Sex: Female

DRUGS (1)
  1. EXUBERA [Suspect]
     Indication: DIABETES MELLITUS

REACTIONS (2)
  - BLOOD GLUCOSE INCREASED [None]
  - DEATH [None]
